FAERS Safety Report 20499975 (Version 1)
Quarter: 2022Q1

REPORT INFORMATION
  Report Type: Other
  Country: US (occurrence: None)
  Receive Date: 20220222
  Receipt Date: 20220222
  Transmission Date: 20220423
  Serious: Yes (Other)
  Sender: FDA-Public Use
  Company Number: US-ROCHE-3024459

PATIENT

DRUGS (1)
  1. RISDIPLAM [Suspect]
     Active Substance: RISDIPLAM
     Indication: Spinal muscular atrophy
     Dosage: (LOW DOSE 0.08 MG/KG/DAY VS. HIGH DOSE 0.2 MG/KG/DAY
     Route: 048

REACTIONS (4)
  - Pneumonia [Unknown]
  - Respiratory distress [Unknown]
  - Respiratory failure [Unknown]
  - Respiratory tract infection [Unknown]
